FAERS Safety Report 11939639 (Version 1)
Quarter: 2016Q1

REPORT INFORMATION
  Report Type: Spontaneous
  Country: GB (occurrence: GB)
  Receive Date: 20160122
  Receipt Date: 20160122
  Transmission Date: 20160526
  Serious: Yes (Other)
  Sender: FDA-Public Use
  Company Number: GB-TEVA-625357ACC

PATIENT
  Age: 26 Year
  Sex: Female
  Weight: 60 kg

DRUGS (4)
  1. CITALOPRAM [Suspect]
     Active Substance: CITALOPRAM HYDROBROMIDE
     Indication: ANXIETY DISORDER
     Route: 048
     Dates: start: 20151221, end: 20160105
  2. IBUPROFEN LYSINE [Concomitant]
     Active Substance: IBUPROFEN LYSINE
  3. DEPO-PROVERA [Concomitant]
     Active Substance: MEDROXYPROGESTERONE ACETATE
  4. SUMATRIPTAN. [Concomitant]
     Active Substance: SUMATRIPTAN

REACTIONS (7)
  - Dizziness [Not Recovered/Not Resolved]
  - Somnolence [Recovered/Resolved]
  - Disturbance in sexual arousal [Not Recovered/Not Resolved]
  - Headache [Recovered/Resolved]
  - Insomnia [Not Recovered/Not Resolved]
  - Nausea [Recovered/Resolved]
  - Pain in jaw [Recovered/Resolved]

NARRATIVE: CASE EVENT DATE: 20151221
